FAERS Safety Report 25889579 (Version 1)
Quarter: 2025Q4

REPORT INFORMATION
  Report Type: Spontaneous
  Country: EU (occurrence: EU)
  Receive Date: 20251007
  Receipt Date: 20251007
  Transmission Date: 20260117
  Serious: Yes (Other)
  Sender: BAXTER
  Company Number: None

PATIENT
  Age: 61 Year
  Sex: Male

DRUGS (10)
  1. CYCLOPHOSPHAMIDE [Suspect]
     Active Substance: CYCLOPHOSPHAMIDE
     Indication: Eosinophilic granulomatosis with polyangiitis
     Dosage: FIRST INJECTION
     Route: 042
     Dates: start: 20250728
  2. CYCLOPHOSPHAMIDE [Suspect]
     Active Substance: CYCLOPHOSPHAMIDE
     Dosage: SECOND INJECTION
     Route: 042
     Dates: start: 20250812
  3. MESNA [Suspect]
     Active Substance: MESNA
     Indication: Drug toxicity prophylaxis
     Dosage: FIRST INJECTION
     Route: 042
     Dates: start: 20250728
  4. MESNA [Suspect]
     Active Substance: MESNA
     Dosage: SECOND INJECTION
     Route: 042
     Dates: start: 20250812
  5. BACTRIM [Suspect]
     Active Substance: SULFAMETHOXAZOLE\TRIMETHOPRIM
     Indication: Antibiotic prophylaxis
     Dosage: UNK
     Route: 048
     Dates: start: 20250730, end: 20250812
  6. ONDANSETRON [Suspect]
     Active Substance: ONDANSETRON
     Indication: Prophylaxis of nausea and vomiting
     Dosage: FIRST INJECTION (ONDANSETRON HYDROCHLORIDE DIHYDRATE)
     Route: 042
     Dates: start: 20250728
  7. ONDANSETRON [Suspect]
     Active Substance: ONDANSETRON
     Dosage: SECOND INJECTION (ONDANSETRON HYDROCHLORIDE DIHYDRATE)
     Route: 042
     Dates: start: 20250812
  8. ACLASTA [Suspect]
     Active Substance: ZOLEDRONIC ACID
     Indication: Osteoporosis
     Dosage: SINGLE INJECTION, FREQUENCY: EVERY 1 YEAR, (ZOLEDRONIC ACID MONOHYDRATE)
     Route: 042
     Dates: start: 20250806
  9. BENRALIZUMAB [Concomitant]
     Active Substance: BENRALIZUMAB
     Indication: Eosinophilic granulomatosis with polyangiitis
     Dosage: SINGLE INJECTION, (MAMMAL/HAMSTER/CHO CELLS)
     Route: 058
     Dates: start: 20250709
  10. PREVNAR 20 [Concomitant]
     Active Substance: PNEUMOCOCCAL 20-VALENT CONJUGATE VACCINE
     Dosage: UNK
     Route: 065
     Dates: start: 20250805

REACTIONS (1)
  - Rash maculo-papular [Unknown]

NARRATIVE: CASE EVENT DATE: 20250812
